FAERS Safety Report 18806689 (Version 1)
Quarter: 2021Q1

REPORT INFORMATION
  Report Type: Spontaneous
  Country: US (occurrence: US)
  Receive Date: 20210128
  Receipt Date: 20210128
  Transmission Date: 20210419
  Serious: Yes (Hospitalization)
  Sender: FDA-Public Use
  Company Number: None

PATIENT
  Age: 75 Year
  Sex: Male

DRUGS (12)
  1. ALLOPURNIOL [Concomitant]
  2. HYDROCHLOROT [Concomitant]
     Active Substance: HYDROCHLOROTHIAZIDE
  3. TIZADININE [Concomitant]
  4. SPIRONOLACT [Concomitant]
     Active Substance: SPIRONOLACTONE
  5. TROSPIUM [Concomitant]
     Active Substance: TROSPIUM
  6. VYNDAQEL [Suspect]
     Active Substance: TAFAMIDIS MEGLUMINE
     Indication: CARDIOMYOPATHY
     Route: 048
     Dates: start: 20200110
  7. BACLOFEN. [Concomitant]
     Active Substance: BACLOFEN
  8. SOLFENCIN [Concomitant]
  9. ELIQUIS [Concomitant]
     Active Substance: APIXABAN
  10. OPTICHAMBEER [Concomitant]
  11. TORSEMIDE. [Concomitant]
     Active Substance: TORSEMIDE
  12. SAVAYSA [Concomitant]
     Active Substance: EDOXABAN TOSYLATE

REACTIONS (1)
  - Asthenia [None]

NARRATIVE: CASE EVENT DATE: 20210126
